FAERS Safety Report 18065314 (Version 1)
Quarter: 2020Q3

REPORT INFORMATION
  Report Type: Spontaneous
  Country: US (occurrence: US)
  Receive Date: 20200723
  Receipt Date: 20200723
  Transmission Date: 20201103
  Serious: Yes (Death)
  Sender: FDA-Public Use
  Company Number: None

PATIENT
  Age: 85 Year
  Sex: Male

DRUGS (9)
  1. VYNDAMAX [Suspect]
     Active Substance: TAFAMIDIS
     Indication: AMYLOIDOSIS
     Route: 048
     Dates: start: 20200122
  2. NYSTATIN. [Concomitant]
     Active Substance: NYSTATIN
  3. GLIPIZIDE ER [Concomitant]
     Active Substance: GLIPIZIDE
  4. SPIRINOLACT [Concomitant]
  5. ALPRAZOLAM. [Concomitant]
     Active Substance: ALPRAZOLAM
  6. SIMVASTATIN. [Concomitant]
     Active Substance: SIMVASTATIN
  7. GENTAMYCIN [Concomitant]
     Active Substance: GENTAMICIN
  8. TRAZODONE [Concomitant]
     Active Substance: TRAZODONE HYDROCHLORIDE
  9. TORSEMIDE. [Concomitant]
     Active Substance: TORSEMIDE

REACTIONS (1)
  - Death [None]
